FAERS Safety Report 25014649 (Version 2)
Quarter: 2025Q1

REPORT INFORMATION
  Report Type: Spontaneous
  Country: US (occurrence: US)
  Receive Date: 20250226
  Receipt Date: 20250227
  Transmission Date: 20250408
  Serious: No
  Sender: PFIZER
  Company Number: US-PFIZER INC-202500042693

PATIENT
  Age: 16 Year
  Sex: Male
  Weight: 52.16 kg

DRUGS (1)
  1. OXBRYTA [Suspect]
     Active Substance: VOXELOTOR
     Indication: Sickle cell anaemia
     Dosage: 5 TABLETS IN 25ML OF LIQUID OR DRINK ONCE A DAY

REACTIONS (2)
  - Rash [Unknown]
  - Bone density abnormal [Unknown]
